FAERS Safety Report 6058202-7 (Version None)
Quarter: 2009Q1

REPORT INFORMATION
  Report Type: 
  Country: None (occurrence: None)
  Receive Date: 20090130
  Receipt Date: 20081022
  Transmission Date: 20090719
  Serious: Yes (Other)
  Sender: FDA-Public Use
  Company Number: US-PFIZER INC-2008089604

PATIENT
  Sex: Male
  Weight: 80.909 kg

DRUGS (11)
  1. XALATAN [Suspect]
     Indication: GLAUCOMA
     Dosage: 1 GTT, 1X/DAY
     Route: 047
     Dates: start: 19980101
  2. REGLAN [Suspect]
  3. ALL OTHER THERAPEUTIC PRODUCTS [Suspect]
     Dates: start: 20040101
  4. AMARYL [Concomitant]
  5. CALCITRIOL [Concomitant]
     Indication: PARATHYROID DISORDER
  6. SPIRONOLACTONE [Concomitant]
  7. FOLATE [Concomitant]
  8. ZOLPIDEM TARTRATE [Concomitant]
  9. PLAVIX [Concomitant]
  10. BETOPTIC [Concomitant]
     Dates: end: 20080101
  11. GLIMEPIRIDE [Concomitant]

REACTIONS (8)
  - ABDOMINAL DISCOMFORT [None]
  - ARTERIAL OCCLUSIVE DISEASE [None]
  - CARDIAC FAILURE CONGESTIVE [None]
  - DIZZINESS [None]
  - FLUID IMBALANCE [None]
  - HEART RATE IRREGULAR [None]
  - INTRAOCULAR PRESSURE INCREASED [None]
  - MALAISE [None]
